FAERS Safety Report 18763627 (Version 1)
Quarter: 2021Q1

REPORT INFORMATION
  Report Type: Spontaneous
  Country: JP (occurrence: JP)
  Receive Date: 20210120
  Receipt Date: 20210120
  Transmission Date: 20210419
  Serious: Yes (Hospitalization)
  Sender: FDA-Public Use
  Company Number: JP-ACELLA PHARMACEUTICALS, LLC-2105589

PATIENT
  Age: 52 Year
  Sex: Male

DRUGS (5)
  1. HYDROCODONE BITARTRATE AND CHLORPHENIRAMINE MALEATE [Suspect]
     Active Substance: CHLORPHENIRAMINE MALEATE\HYDROCODONE BITARTRATE
     Indication: OVERDOSE
     Route: 048
  2. METHYLEPHEDRINE [Suspect]
     Active Substance: METHYLEPHEDRINE
     Route: 048
  3. CAFFEINE. [Suspect]
     Active Substance: CAFFEINE
     Route: 048
  4. DIHYDROCODEINE [Suspect]
     Active Substance: DIHYDROCODEINE
     Route: 048
  5. ACETAMINOPHEN. [Suspect]
     Active Substance: ACETAMINOPHEN
     Route: 048

REACTIONS (1)
  - Cardiac failure [Recovering/Resolving]
